FAERS Safety Report 7989071-3 (Version None)
Quarter: 2011Q4

REPORT INFORMATION
  Report Type: 
  Country: None (occurrence: None)
  Receive Date: 20111219
  Receipt Date: 20111207
  Transmission Date: 20120403
  Serious: Yes (Hospitalization)
  Sender: FDA-Public Use
  Company Number: US-BAYER-2011-034996

PATIENT
  Age: 33 Year
  Sex: Female

DRUGS (10)
  1. NORCO [Concomitant]
     Dosage: UNK, QD
     Dates: start: 20060101
  2. PREMARIN [Concomitant]
     Route: 067
  3. VALIUM [Concomitant]
     Indication: ANXIETY
     Dosage: 10 MG, QID
     Route: 048
     Dates: start: 20080601
  4. LITHIUM CARBONATE [Concomitant]
     Indication: BIPOLAR DISORDER
     Dosage: 450 MG, BID
     Route: 048
     Dates: start: 20090101, end: 20090901
  5. METHOCARBAMOL [Concomitant]
     Indication: MUSCLE RELAXANT THERAPY
     Dosage: UNK
     Route: 048
     Dates: start: 20080601, end: 20090501
  6. RITALIN [Concomitant]
     Indication: DISTURBANCE IN ATTENTION
     Dosage: 30 MG, QD
     Route: 048
     Dates: start: 20080601, end: 20090901
  7. RITALIN [Concomitant]
     Indication: PSYCHOMOTOR HYPERACTIVITY
  8. YAZ [Suspect]
     Indication: ACNE
  9. NORCO [Concomitant]
     Indication: PAIN
     Dosage: UNK UNK, QD
     Route: 048
     Dates: start: 20081201, end: 20091001
  10. YAZ [Suspect]
     Indication: CONTRACEPTION
     Dosage: UNK
     Dates: start: 20090402, end: 20090730

REACTIONS (3)
  - PAIN IN EXTREMITY [None]
  - DEEP VEIN THROMBOSIS [None]
  - MENTAL DISORDER [None]
